FAERS Safety Report 7419905-2 (Version None)
Quarter: 2011Q2

REPORT INFORMATION
  Report Type: 
  Country: None (occurrence: None)
  Receive Date: 20110418
  Receipt Date: 20110411
  Transmission Date: 20111010
  Serious: Yes (Other)
  Sender: FDA-Public Use
  Company Number: FR-SANOFI-AVENTIS-2011SA022287

PATIENT
  Age: 49 Year
  Sex: Female

DRUGS (13)
  1. METFORMIN HYDROCHLORIDE [Concomitant]
     Route: 048
  2. TRIMETAZIDINE HYDROCHLORIDE [Concomitant]
     Route: 065
  3. DIFFU K [Suspect]
     Route: 048
     Dates: end: 20101109
  4. MEDIATOR [Suspect]
     Route: 048
     Dates: start: 20000916, end: 20091101
  5. ENALAPRIL [Suspect]
     Route: 048
  6. AMLODIPINE BESYLATE [Suspect]
     Route: 048
     Dates: start: 20070101, end: 20101109
  7. LEVOTHYROX [Suspect]
     Route: 048
     Dates: start: 20060101
  8. NEBIVOLOL HCL [Concomitant]
     Route: 048
  9. TAHOR [Suspect]
     Route: 048
     Dates: start: 20070101
  10. IPERTEN [Concomitant]
     Route: 048
  11. LASIX [Suspect]
     Route: 048
     Dates: end: 20101109
  12. TELMISARTAN AND HYDROCHLOROTHIAZIDE [Concomitant]
     Route: 048
  13. ROSUVASTATIN [Concomitant]
     Route: 048

REACTIONS (3)
  - AORTIC VALVE DISEASE [None]
  - MITRAL VALVE DISEASE [None]
  - PULMONARY ARTERIAL HYPERTENSION [None]
